FAERS Safety Report 9726422 (Version 5)
Quarter: 2015Q1

REPORT INFORMATION
  Report Type: Spontaneous
  Country: US (occurrence: US)
  Receive Date: 20131203
  Receipt Date: 20150127
  Transmission Date: 20150721
  Serious: Yes (Life-Threatening, Hospitalization)
  Sender: FDA-Public Use
  Company Number: US-BAYER-2013-145395

PATIENT
  Age: 28 Year
  Sex: Female
  Weight: 63.49 kg

DRUGS (2)
  1. PERCOCET [Concomitant]
     Active Substance: ACETAMINOPHEN\OXYCODONE HYDROCHLORIDE
  2. MIRENA [Suspect]
     Active Substance: LEVONORGESTREL
     Indication: CONTRACEPTION
     Dosage: 20 MCG/24HR, CONT
     Route: 015
     Dates: start: 20100824, end: 20111230

REACTIONS (14)
  - Uterine perforation [None]
  - Anxiety [None]
  - Activities of daily living impaired [None]
  - Anhedonia [None]
  - Infection [None]
  - Device breakage [None]
  - Device difficult to use [None]
  - Injury [None]
  - Device issue [None]
  - General physical health deterioration [None]
  - Surgery [None]
  - Abdominal pain [None]
  - Emotional distress [None]
  - Cyst [None]

NARRATIVE: CASE EVENT DATE: 201112
